FAERS Safety Report 5702564-4 (Version None)
Quarter: 2008Q2

REPORT INFORMATION
  Report Type: 
  Country: None (occurrence: None)
  Receive Date: 20080410
  Receipt Date: 20080410
  Transmission Date: 20081010
  Serious: Yes (Other)
  Sender: FDA-Public Use
  Company Number: None

PATIENT
  Age: 18 Year
  Sex: Female
  Weight: 65.7716 kg

DRUGS (4)
  1. CYMBALTA [Suspect]
     Indication: DEPRESSION
     Dosage: 60 MG DAIY PO
     Route: 048
     Dates: start: 20071001, end: 20080404
  2. CYMBALTA [Suspect]
     Indication: GENERALISED ANXIETY DISORDER
     Dosage: 60 MG DAIY PO
     Route: 048
     Dates: start: 20071001, end: 20080404
  3. KLONOPIN [Concomitant]
  4. ADDERALL XR 10 [Concomitant]

REACTIONS (27)
  - ABDOMINAL PAIN UPPER [None]
  - ABNORMAL SENSATION IN EYE [None]
  - ACTIVITIES OF DAILY LIVING IMPAIRED [None]
  - ASTHENOPIA [None]
  - CONDITION AGGRAVATED [None]
  - CRYING [None]
  - DECREASED APPETITE [None]
  - DEPRESSION [None]
  - DISORIENTATION [None]
  - DIZZINESS [None]
  - DYSPNOEA [None]
  - EYE PAIN [None]
  - FATIGUE [None]
  - GAIT DISTURBANCE [None]
  - HEADACHE [None]
  - HEART RATE INCREASED [None]
  - HYPERVENTILATION [None]
  - HYPOAESTHESIA [None]
  - HYPOVENTILATION [None]
  - INAPPROPRIATE SCHEDULE OF DRUG ADMINISTRATION [None]
  - IRRITABILITY [None]
  - NAUSEA [None]
  - PHOTOPHOBIA [None]
  - POOR PERIPHERAL CIRCULATION [None]
  - SKIN DISCOLOURATION [None]
  - VISUAL ACUITY REDUCED [None]
  - WITHDRAWAL SYNDROME [None]
